FAERS Safety Report 9539031 (Version 1)
Quarter: 2013Q2

REPORT INFORMATION
  Report Type: Spontaneous
  Country: US (occurrence: None)
  Receive Date: 20130507
  Receipt Date: 20130507
  Transmission Date: 20140414
  Serious: Yes (Other)
  Sender: FDA-Public Use
  Company Number: PHEH2012US024035

PATIENT
  Sex: 0

DRUGS (1)
  1. TASIGNA (AMN107) CAPSULE [Suspect]
     Route: 048

REACTIONS (1)
  - Pleural effusion [None]
